FAERS Safety Report 4782620-8 (Version None)
Quarter: 2005Q3

REPORT INFORMATION
  Report Type: 
  Country: None (occurrence: None)
  Receive Date: 20050929
  Receipt Date: 20050429
  Transmission Date: 20060218
  Serious: No
  Sender: FDA-Public Use
  Company Number: 404087

PATIENT
  Age: 62 Year
  Sex: Male

DRUGS (7)
  1. COREG [Suspect]
     Dosage: 12.5MG PER DAY
     Route: 048
  2. HUMALOG [Concomitant]
  3. SYNTHROID [Concomitant]
  4. MONOPRIL [Concomitant]
  5. UROXATRAL [Concomitant]
  6. VIAGRA [Concomitant]
  7. INSULIN [Concomitant]

REACTIONS (2)
  - BLOOD GLUCOSE INCREASED [None]
  - DRUG ADMINISTRATION ERROR [None]
